FAERS Safety Report 5362984-7 (Version None)
Quarter: 2007Q2

REPORT INFORMATION
  Report Type: 
  Country: None (occurrence: None)
  Receive Date: 20070615
  Receipt Date: 20070531
  Transmission Date: 20071010
  Serious: Yes (Hospitalization)
  Sender: FDA-Public Use
  Company Number: 2007001002

PATIENT
  Age: 64 Year
  Sex: Female

DRUGS (4)
  1. TARCEVA [Suspect]
     Indication: LUNG NEOPLASM MALIGNANT
     Dosage: 150 MG (QD), ORAL
     Route: 048
     Dates: start: 20061212, end: 20070114
  2. RABEPRAZOLE SODIUM [Concomitant]
  3. MEDROL [Concomitant]
  4. PERINDOPRIL ERBUMINE [Concomitant]

REACTIONS (3)
  - DEHYDRATION [None]
  - DIARRHOEA [None]
  - SKIN TOXICITY [None]
